FAERS Safety Report 8438871-4 (Version None)
Quarter: 2012Q2

REPORT INFORMATION
  Report Type: 
  Country: None (occurrence: None)
  Receive Date: 20120323
  Receipt Date: 20110616
  Transmission Date: 20120825
  Serious: Yes (Other)
  Sender: FDA-Public Use
  Company Number: 163-21880-11062643

PATIENT
  Age: 76 Year
  Sex: Male
  Weight: 90.7194 kg

DRUGS (12)
  1. LISINOPRIL [Concomitant]
  2. OSTEO BI-FLEX (OSTEO BI-FLEX) [Concomitant]
  3. CARVEDILOL [Concomitant]
  4. FERROUS SULFATE TAB [Concomitant]
  5. REVLIMID [Suspect]
  6. FISH OIL (FISH OIL) [Concomitant]
  7. REVLIMID [Suspect]
     Indication: MULTIPLE MYELOMA
     Dosage: 10 MG, 21/7, PO
     Route: 048
     Dates: start: 20110628
  8. NEXIUM [Concomitant]
  9. AVODART [Concomitant]
  10. LOVASTATIN [Concomitant]
  11. ASPIRIN [Concomitant]
  12. TRICOR [Concomitant]

REACTIONS (3)
  - BLOOD PRESSURE DECREASED [None]
  - CHEST PAIN [None]
  - HYPERHIDROSIS [None]
